FAERS Safety Report 14506998 (Version 3)
Quarter: 2018Q2

REPORT INFORMATION
  Report Type: Spontaneous
  Country: US (occurrence: US)
  Receive Date: 20180208
  Receipt Date: 20180409
  Transmission Date: 20180711
  Serious: Yes (Hospitalization)
  Sender: FDA-Public Use
  Company Number: US-SA-2018SA029558

PATIENT
  Age: 59 Year
  Sex: Female
  Weight: 63.5 kg

DRUGS (13)
  1. SOLOSTAR [Concomitant]
     Active Substance: DEVICE
  2. SOLOSTAR [Suspect]
     Active Substance: DEVICE
     Indication: TYPE 1 DIABETES MELLITUS
     Dates: start: 201801
  3. MAGNESIUM [Concomitant]
     Active Substance: MAGNESIUM
     Indication: ROUTINE HEALTH MAINTENANCE
     Route: 065
  4. SOLOSTAR [Suspect]
     Active Substance: DEVICE
     Indication: TYPE 1 DIABETES MELLITUS
     Dates: end: 20180104
  5. LANTUS SOLOSTAR [Concomitant]
     Active Substance: INSULIN GLARGINE
  6. TOPROL XL [Concomitant]
     Active Substance: METOPROLOL SUCCINATE
     Indication: SUPRAVENTRICULAR TACHYCARDIA
     Route: 065
  7. CAPTOPRIL. [Concomitant]
     Active Substance: CAPTOPRIL
     Indication: RENAL DISORDER
     Route: 065
  8. TOUJEO [Suspect]
     Active Substance: INSULIN GLARGINE
     Indication: TYPE 1 DIABETES MELLITUS
     Dosage: DOSE:45 UNIT(S)
     Route: 051
     Dates: start: 201801
  9. ATORVASTATIN [Concomitant]
     Active Substance: ATORVASTATIN
     Indication: BLOOD CHOLESTEROL INCREASED
     Route: 065
  10. NOVOLOG [Concomitant]
     Active Substance: INSULIN ASPART
     Indication: DIABETES MELLITUS
     Dosage: DOSE: SLIDING SCALE
     Route: 065
  11. TOUJEO [Suspect]
     Active Substance: INSULIN GLARGINE
     Indication: TYPE 1 DIABETES MELLITUS
     Dosage: DOSE:45 UNIT(S)
     Route: 051
     Dates: end: 20180104
  12. FISH OIL [Concomitant]
     Active Substance: FISH OIL
     Indication: ROUTINE HEALTH MAINTENANCE
     Route: 065
  13. VITAMIN B [Concomitant]
     Active Substance: VITAMIN B
     Indication: ROUTINE HEALTH MAINTENANCE
     Route: 065

REACTIONS (11)
  - Dyspnoea [Unknown]
  - Diabetic ketoacidosis [Recovered/Resolved]
  - Hyperglycaemia [Unknown]
  - Decreased appetite [Unknown]
  - Dyspnoea [Unknown]
  - Restlessness [Unknown]
  - Vomiting [Unknown]
  - Nausea [Unknown]
  - Device use issue [Unknown]
  - Thinking abnormal [Unknown]
  - Injection site extravasation [Unknown]

NARRATIVE: CASE EVENT DATE: 20171231
